FAERS Safety Report 17305897 (Version 1)
Quarter: 2020Q1

REPORT INFORMATION
  Report Type: Spontaneous
  Country: JP (occurrence: JP)
  Receive Date: 20200123
  Receipt Date: 20200123
  Transmission Date: 20200409
  Serious: Yes (Other)
  Sender: FDA-Public Use
  Company Number: JP-ROCHE-2526975

PATIENT
  Age: 68 Year
  Sex: Female

DRUGS (1)
  1. TRASTUZUMAB EMTANSINE [Suspect]
     Active Substance: ADO-TRASTUZUMAB EMTANSINE
     Indication: BREAST CANCER METASTATIC
     Route: 042

REACTIONS (6)
  - Venoocclusive liver disease [Unknown]
  - Hepatitis [Unknown]
  - Aspartate aminotransferase increased [Unknown]
  - Non-cirrhotic portal hypertension [Unknown]
  - Splenomegaly [Recovering/Resolving]
  - Platelet count decreased [Unknown]
